FAERS Safety Report 18401916 (Version 1)
Quarter: 2020Q4

REPORT INFORMATION
  Report Type: Spontaneous
  Country: JP (occurrence: JP)
  Receive Date: 20201019
  Receipt Date: 20201019
  Transmission Date: 20210114
  Serious: Yes (Hospitalization)
  Sender: FDA-Public Use
  Company Number: JP-NOVOPROD-759806

PATIENT
  Age: 85 Year
  Sex: Female

DRUGS (1)
  1. INNOLET 30R CHU [Suspect]
     Active Substance: INSULIN NOS
     Indication: DIABETES MELLITUS
     Dosage: UNK (TID)
     Route: 058

REACTIONS (3)
  - Hyperglycaemia [Unknown]
  - Fracture [Unknown]
  - Off label use [Unknown]
